FAERS Safety Report 14112246 (Version 14)
Quarter: 2018Q4

REPORT INFORMATION
  Report Type: Report from Study
  Country: US (occurrence: US)
  Receive Date: 20171020
  Receipt Date: 20181221
  Transmission Date: 20190204
  Serious: Yes (Death, Life-Threatening, Hospitalization)
  Sender: FDA-Public Use
  Company Number: US-ACTELION-A-NJ2017-159837

PATIENT
  Age: 43 Year
  Sex: Female
  Weight: 55.78 kg

DRUGS (47)
  1. PREDNISONE. [Concomitant]
     Active Substance: PREDNISONE
     Dosage: UNK
     Dates: start: 20140326
  2. DIPHENHYDRAMINE. [Concomitant]
     Active Substance: DIPHENHYDRAMINE
  3. LORATADINE. [Concomitant]
     Active Substance: LORATADINE
  4. NEXIUM [Concomitant]
     Active Substance: ESOMEPRAZOLE MAGNESIUM
  5. RESTASIS [Concomitant]
     Active Substance: CYCLOSPORINE
  6. DULCOLAX NOS [Concomitant]
     Active Substance: BISACODYL OR DOCUSATE SODIUM
  7. BISACODYL. [Concomitant]
     Active Substance: BISACODYL
  8. HYDROXYZINE [Concomitant]
     Active Substance: HYDROXYZINE HYDROCHLORIDE
  9. TUMS ULTRA [Concomitant]
     Active Substance: CALCIUM CARBONATE
  10. ALPRAZOLAM. [Concomitant]
     Active Substance: ALPRAZOLAM
  11. BENADRYL [Concomitant]
     Active Substance: DIPHENHYDRAMINE HYDROCHLORIDE
  12. DILTIAZEM. [Concomitant]
     Active Substance: DILTIAZEM
  13. OMEPRAZOLE. [Concomitant]
     Active Substance: OMEPRAZOLE
  14. CITALOPRAM [Concomitant]
     Active Substance: CITALOPRAM HYDROBROMIDE
  15. METOPROLOL. [Concomitant]
     Active Substance: METOPROLOL
  16. AMBIEN [Concomitant]
     Active Substance: ZOLPIDEM TARTRATE
  17. CELEXA [Concomitant]
     Active Substance: CITALOPRAM HYDROBROMIDE
     Dosage: UNK
     Dates: start: 20040909
  18. LASIX [Concomitant]
     Active Substance: FUROSEMIDE
  19. FLONASE [Concomitant]
     Active Substance: FLUTICASONE PROPIONATE
  20. NYSTATIN. [Concomitant]
     Active Substance: NYSTATIN
  21. RIVAROXABAN [Concomitant]
     Active Substance: RIVAROXABAN
  22. LEVOTHYROXINE. [Concomitant]
     Active Substance: LEVOTHYROXINE
  23. MIRALAX [Concomitant]
     Active Substance: POLYETHYLENE GLYCOL 3350
  24. PHENOL. [Concomitant]
     Active Substance: PHENOL
     Dosage: UNK
     Dates: start: 20170929
  25. ZOFRAN [Concomitant]
     Active Substance: ONDANSETRON HYDROCHLORIDE
     Dosage: UNK
     Dates: start: 20170917
  26. OXYCODONE [Concomitant]
     Active Substance: OXYCODONE
  27. FLUTICASONE. [Concomitant]
     Active Substance: FLUTICASONE
  28. SPIRONOLACTONE. [Concomitant]
     Active Substance: SPIRONOLACTONE
  29. UPTRAVI [Suspect]
     Active Substance: SELEXIPAG
     Indication: PULMONARY ARTERIAL HYPERTENSION
     Dosage: UNK
     Route: 048
     Dates: start: 20170722, end: 20180503
  30. UPTRAVI [Suspect]
     Active Substance: SELEXIPAG
     Dosage: 200 MCG, BID
     Route: 048
     Dates: start: 20170622
  31. NORVASC [Suspect]
     Active Substance: AMLODIPINE BESYLATE
     Indication: PRODUCT USED FOR UNKNOWN INDICATION
     Route: 065
  32. NITROGLYCERINE [Concomitant]
     Active Substance: NITROGLYCERIN
  33. LORAZEPAM. [Concomitant]
     Active Substance: LORAZEPAM
  34. BIOTENE NOS [Concomitant]
     Active Substance: CETYLPYRIDINIUM CHLORIDE OR SODIUM FLUORIDE OR SODIUM MONOFLUOROPHOSPHATE OR GLUCOSE OXIDASE\LACTOFERRIN\LACTOPEROXIDASE BOVINE\LYSOZYME
  35. NITRO [Concomitant]
     Active Substance: NITROGLYCERIN
  36. LISINOPRIL. [Concomitant]
     Active Substance: LISINOPRIL
  37. UPTRAVI [Suspect]
     Active Substance: SELEXIPAG
     Dosage: 400 MCG, BID
     Route: 048
     Dates: start: 20171030, end: 20180503
  38. TYLENOL 8HR [Concomitant]
     Active Substance: ACETAMINOPHEN
     Dosage: UNK
     Dates: start: 20170829
  39. VOLTAREN [Concomitant]
     Active Substance: DICLOFENAC SODIUM
     Route: 061
  40. ASPIRIN. [Concomitant]
     Active Substance: ASPIRIN
  41. NITRO-BID [Concomitant]
     Active Substance: NITROGLYCERIN
  42. DICLOFENAC [Concomitant]
     Active Substance: DICLOFENAC
  43. ATORVASTATIN [Concomitant]
     Active Substance: ATORVASTATIN
  44. DEBROX [Concomitant]
     Active Substance: CARBAMIDE PEROXIDE
  45. INSULIN LISPRO [Concomitant]
     Active Substance: INSULIN LISPRO
  46. LETAIRIS [Concomitant]
     Active Substance: AMBRISENTAN
  47. CHOLECALCIFEROL [Concomitant]
     Active Substance: CHOLECALCIFEROL

REACTIONS (45)
  - Urinary tract infection [Recovering/Resolving]
  - Cellulitis [Not Recovered/Not Resolved]
  - Death [Fatal]
  - Sepsis [Recovering/Resolving]
  - Acute respiratory failure [Recovered/Resolved with Sequelae]
  - Crepitations [Recovered/Resolved with Sequelae]
  - Cerebrovascular accident [Not Recovered/Not Resolved]
  - Condition aggravated [Not Recovered/Not Resolved]
  - Abdominal pain [Unknown]
  - Pyrexia [Not Recovered/Not Resolved]
  - Dyspnoea [Recovered/Resolved with Sequelae]
  - Oxygen saturation decreased [Recovered/Resolved with Sequelae]
  - Nausea [Unknown]
  - Non-cardiac chest pain [Unknown]
  - Oesophageal food impaction [Unknown]
  - Chest pain [Unknown]
  - Cardiac failure congestive [Not Recovered/Not Resolved]
  - Cardiomegaly [Unknown]
  - Pericardial effusion [Unknown]
  - Diarrhoea [Unknown]
  - Atrial tachycardia [Unknown]
  - Pain in extremity [Not Recovered/Not Resolved]
  - Wound drainage [Not Recovered/Not Resolved]
  - Vomiting [Unknown]
  - Asthenia [Unknown]
  - Gastric disorder [Unknown]
  - Brain natriuretic peptide increased [Not Recovered/Not Resolved]
  - Orthopnoea [Not Recovered/Not Resolved]
  - Neutropenia [Unknown]
  - Skin ulcer [Not Recovered/Not Resolved]
  - Hypokinesia [Not Recovered/Not Resolved]
  - Fall [Unknown]
  - Haemoglobin decreased [Not Recovered/Not Resolved]
  - Blood urea increased [Not Recovered/Not Resolved]
  - Back pain [Recovered/Resolved with Sequelae]
  - Facial paralysis [Not Recovered/Not Resolved]
  - Alopecia [Unknown]
  - Ear pain [Unknown]
  - Atrial fibrillation [Unknown]
  - Cardiomyopathy [Unknown]
  - Atrial flutter [Unknown]
  - Hernia repair [Unknown]
  - Clostridium difficile infection [Unknown]
  - Hypotension [Unknown]
  - Systemic lupus erythematosus [Unknown]

NARRATIVE: CASE EVENT DATE: 20170708
